FAERS Safety Report 12070137 (Version 1)
Quarter: 2016Q1

REPORT INFORMATION
  Report Type: Report from Study
  Country: CO (occurrence: CO)
  Receive Date: 20160211
  Receipt Date: 20160211
  Transmission Date: 20160526
  Serious: Yes (Other)
  Sender: FDA-Public Use
  Company Number: CO-BAYER-2016-020354

PATIENT
  Age: 59 Year
  Sex: Male

DRUGS (1)
  1. NEXAVAR [Suspect]
     Active Substance: SORAFENIB
     Indication: THYROID CANCER
     Dosage: 200 MG, BID
     Route: 048
     Dates: start: 20151122, end: 20151222

REACTIONS (9)
  - Asthenia [Recovering/Resolving]
  - Arrhythmia [Recovering/Resolving]
  - Psychotic disorder [Recovering/Resolving]
  - Gastrointestinal disorder [Recovering/Resolving]
  - Lung disorder [Recovering/Resolving]
  - Alopecia [Recovering/Resolving]
  - Skin disorder [Recovering/Resolving]
  - Toxicity to various agents [Recovering/Resolving]
  - Dysphonia [Recovering/Resolving]

NARRATIVE: CASE EVENT DATE: 20151122
